FAERS Safety Report 9125512 (Version 1)
Quarter: 2013Q1

REPORT INFORMATION
  Report Type: Report from Study
  Country: FR (occurrence: FR)
  Receive Date: 20130121
  Receipt Date: 20130121
  Transmission Date: 20140127
  Serious: Yes (Hospitalization)
  Sender: FDA-Public Use
  Company Number: FR-AMGEN-FRACT2011015864

PATIENT
  Age: 28 Year
  Sex: Female
  Weight: 74 kg

DRUGS (2)
  1. ETANERCEPT [Suspect]
     Indication: PSORIASIS
     Dosage: 25 MG, QWK
     Route: 058
     Dates: start: 20110304, end: 20110311
  2. JASMINE                            /01502501/ [Concomitant]
     Indication: CONTRACEPTION
     Dosage: 2 DF/DAY
     Route: 048
     Dates: start: 2003

REACTIONS (4)
  - Pyrexia [Recovered/Resolved]
  - Escherichia urinary tract infection [Recovered/Resolved]
  - Bacterial pyelonephritis [Recovered/Resolved]
  - Sinusitis [Recovered/Resolved]
